FAERS Safety Report 6641464-2 (Version None)
Quarter: 2010Q1

REPORT INFORMATION
  Report Type: 
  Country: None (occurrence: None)
  Receive Date: 20100318
  Receipt Date: 20100305
  Transmission Date: 20100710
  Serious: Yes (Death)
  Sender: FDA-Public Use
  Company Number: FR-WATSON-2010-02623

PATIENT
  Age: 16 Year
  Sex: Female

DRUGS (3)
  1. COLCHICINE (WATSON LABORATORIES) [Suspect]
     Indication: INTENTIONAL OVERDOSE
     Dosage: UNK
     Route: 048
  2. TETRAZEPAM [Suspect]
     Indication: INTENTIONAL OVERDOSE
  3. DOLIPRANE [Suspect]
     Indication: INTENTIONAL OVERDOSE

REACTIONS (3)
  - INTENTIONAL OVERDOSE [None]
  - MULTI-ORGAN FAILURE [None]
  - POISONING [None]
